FAERS Safety Report 26110527 (Version 1)
Quarter: 2025Q4

REPORT INFORMATION
  Report Type: Report from Study
  Country: EU (occurrence: EU)
  Receive Date: 20251202
  Receipt Date: 20251202
  Transmission Date: 20260117
  Serious: Yes (Death, Other)
  Sender: AUROBINDO
  Company Number: EU-TETRAPHASE PHARMACEUTICALS, INC-2025-ISTX-000219

PATIENT
  Age: 80 Year
  Sex: Female

DRUGS (4)
  1. PIPERACILLIN AND TAZOBACTAM [Suspect]
     Active Substance: PIPERACILLIN SODIUM\TAZOBACTAM SODIUM
     Indication: Infection
     Dosage: UNK
     Route: 065
  2. LINEZOLID [Suspect]
     Active Substance: LINEZOLID
     Indication: Infection
     Dosage: 600 MILLIGRAM, ONCE A DAY
     Route: 065
  3. XERAVA [Suspect]
     Active Substance: ERAVACYCLINE DIHYDROCHLORIDE
     Indication: Infection
     Dosage: 1 MILLIGRAM/KILOGRAM, ONCE A DAY (ADMINISTERED BETWEEN APR-2023 AND AUG 2024, EXACT PERIOD UNKNOWN)
  4. AMPHOTERICIN B [Suspect]
     Active Substance: AMPHOTERICIN B
     Indication: Infection
     Dosage: 3 MILLIGRAM/KILOGRAM, ONCE A DAY
     Route: 065

REACTIONS (2)
  - Drug ineffective [Fatal]
  - Suspected drug-induced liver injury [Unknown]
